FAERS Safety Report 8495101-5 (Version None)
Quarter: 2012Q3

REPORT INFORMATION
  Report Type: 
  Country: None (occurrence: None)
  Receive Date: 20120709
  Receipt Date: 20120702
  Transmission Date: 20120928
  Serious: Yes (Other)
  Sender: FDA-Public Use
  Company Number: US-JNJFOC-20120701478

PATIENT
  Sex: Male

DRUGS (2)
  1. VELCADE [Suspect]
     Indication: MULTIPLE MYELOMA
     Route: 065
     Dates: start: 20100101, end: 20100701
  2. DOXORUBICIN HCL [Suspect]
     Indication: MULTIPLE MYELOMA
     Route: 042
     Dates: start: 20100101, end: 20100701

REACTIONS (1)
  - FAILURE TO THRIVE [None]
